FAERS Safety Report 6593179-7 (Version None)
Quarter: 2010Q1

REPORT INFORMATION
  Report Type: 
  Country: None (occurrence: None)
  Receive Date: 20100222
  Receipt Date: 20100209
  Transmission Date: 20100710
  Serious: Yes (Other)
  Sender: FDA-Public Use
  Company Number: JP-AMGEN-US379564

PATIENT
  Age: 23 Year
  Sex: Female
  Weight: 56 kg

DRUGS (9)
  1. ENBREL [Suspect]
     Indication: JUVENILE ARTHRITIS
     Route: 058
     Dates: end: 20080729
  2. ENBREL [Suspect]
     Route: 058
     Dates: start: 20080906, end: 20090703
  3. ENBREL [Suspect]
     Route: 058
     Dates: start: 20090710, end: 20091120
  4. ENBREL [Suspect]
     Dosage: LYOPHYLIZED 25 MG 2X/WEEK
     Route: 058
     Dates: start: 20060807, end: 20080212
  5. ENBREL [Suspect]
     Dosage: LYOPHYLIZED 25 MG 1/WEEK TO AN UNKNOWN DATE
     Route: 058
     Dates: start: 20080219
  6. LOXONIN [Suspect]
     Route: 048
     Dates: start: 20091104, end: 20091125
  7. RHEUMATREX [Suspect]
     Indication: JUVENILE ARTHRITIS
     Route: 048
     Dates: start: 20050115, end: 20091119
  8. METOLATE [Concomitant]
     Route: 048
     Dates: start: 20081001
  9. FOLIAMIN [Concomitant]
     Route: 048
     Dates: start: 20050115, end: 20091119

REACTIONS (4)
  - ABORTION SPONTANEOUS [None]
  - ARTHRITIS [None]
  - CONDITION AGGRAVATED [None]
  - DRUG EXPOSURE DURING PREGNANCY [None]
